FAERS Safety Report 11195736 (Version 1)
Quarter: 2015Q2

REPORT INFORMATION
  Report Type: Spontaneous
  Country: US (occurrence: None)
  Receive Date: 20150615
  Receipt Date: 20150615
  Transmission Date: 20150821
  Serious: No
  Sender: FDA-Public Use
  Company Number: None

PATIENT
  Age: 63 Year
  Sex: Female
  Weight: 61.24 kg

DRUGS (1)
  1. AMLODIPINE [Suspect]
     Active Substance: AMLODIPINE BESYLATE
     Indication: HYPERTENSION
     Route: 048

REACTIONS (11)
  - Joint swelling [None]
  - Peripheral swelling [None]
  - Muscular weakness [None]
  - Muscle spasms [None]
  - Stress [None]
  - Balance disorder [None]
  - Dyspepsia [None]
  - Insomnia [None]
  - Photophobia [None]
  - Weight increased [None]
  - Drug effect decreased [None]
